FAERS Safety Report 17571395 (Version 1)
Quarter: 2020Q1

REPORT INFORMATION
  Report Type: Spontaneous
  Country: US (occurrence: US)
  Receive Date: 20200317
  Receipt Date: 20200317
  Transmission Date: 20200409
  Serious: No
  Sender: FDA-Public Use
  Company Number: None

PATIENT
  Age: 11 Year

DRUGS (1)
  1. TOBRAMYCIN NEB 300MG/5ML [Suspect]
     Active Substance: TOBRAMYCIN
     Dosage: ?          OTHER FREQUENCY:UNKNOWN;OTHER ROUTE:UNKNOWN?
     Dates: start: 20171201

REACTIONS (1)
  - Product use issue [None]

NARRATIVE: CASE EVENT DATE: 20200317
